FAERS Safety Report 6233232-0 (Version None)
Quarter: 2009Q2

REPORT INFORMATION
  Report Type: 
  Country: None (occurrence: None)
  Receive Date: 20090617
  Receipt Date: 20090610
  Transmission Date: 20091009
  Serious: Yes (Hospitalization)
  Sender: FDA-Public Use
  Company Number: IT-ASTRAZENECA-2009SE00804

PATIENT
  Age: 26283 Day
  Sex: Male

DRUGS (7)
  1. SIMESTAT [Suspect]
     Indication: METABOLIC SYNDROME
     Route: 048
     Dates: start: 20031001, end: 20090215
  2. SIMESTAT [Suspect]
     Indication: ISCHAEMIC CARDIOMYOPATHY
     Route: 048
     Dates: start: 20031001, end: 20090215
  3. METFORMIN HCL [Concomitant]
  4. ASPIRIN [Concomitant]
     Dosage: 100 MG FREQUENCY UNKNOWN
  5. LOBIVON [Concomitant]
     Dosage: 5 MG
     Route: 048
  6. UNIPRIL [Concomitant]
     Dosage: 10 MG
     Route: 048
  7. IRBESARTAN [Concomitant]
     Dosage: 300 MG
     Route: 048

REACTIONS (1)
  - GLOMERULONEPHRITIS MEMBRANOUS [None]
